FAERS Safety Report 21022439 (Version 1)
Quarter: 2022Q2

REPORT INFORMATION
  Report Type: Report from Study
  Country: US (occurrence: US)
  Receive Date: 20220629
  Receipt Date: 20220629
  Transmission Date: 20220721
  Serious: Yes (Hospitalization)
  Sender: FDA-Public Use
  Company Number: US-EXELIXIS-CABO-22051747

PATIENT
  Sex: Male

DRUGS (8)
  1. CABOMETYX [Suspect]
     Active Substance: CABOZANTINIB S-MALATE
     Indication: Oesophageal carcinoma
     Dosage: 60 MG, QD
     Dates: start: 20220411
  2. CABOMETYX [Suspect]
     Active Substance: CABOZANTINIB S-MALATE
     Dosage: 60 MG, QD
     Dates: end: 20220513
  3. CABOMETYX [Suspect]
     Active Substance: CABOZANTINIB S-MALATE
     Dosage: 60 MG, QD
     Dates: start: 20220523
  4. TABRECTA [Concomitant]
     Active Substance: CAPMATINIB
  5. CAPECITABINE [Concomitant]
     Active Substance: CAPECITABINE
  6. THALOMID [Concomitant]
     Active Substance: THALIDOMIDE
  7. NEXAVAR [Concomitant]
     Active Substance: SORAFENIB
  8. ELIQUIS [Concomitant]
     Active Substance: APIXABAN

REACTIONS (8)
  - Gallbladder disorder [Unknown]
  - Liver disorder [Unknown]
  - Tooth disorder [Recovering/Resolving]
  - Oral pain [Recovered/Resolved]
  - Fatigue [Recovering/Resolving]
  - Dysphonia [Not Recovered/Not Resolved]
  - Constipation [Recovered/Resolved]
  - Off label use [Unknown]
